FAERS Safety Report 20196808 (Version 1)
Quarter: 2021Q4

REPORT INFORMATION
  Report Type: Report from Study
  Country: US (occurrence: US)
  Receive Date: 20211217
  Receipt Date: 20211217
  Transmission Date: 20220303
  Serious: No
  Sender: FDA-Public Use
  Company Number: US-Ipsen Biopharmaceuticals, Inc.-2021-31271

PATIENT
  Sex: Female

DRUGS (1)
  1. SOMATULINE DEPOT [Suspect]
     Active Substance: LANREOTIDE ACETATE
     Indication: Product used for unknown indication
     Dosage: 120 MG EVERY 4 WEEKS
     Route: 058
     Dates: start: 2020

REACTIONS (6)
  - Pain [Recovering/Resolving]
  - Injection site haemorrhage [Recovering/Resolving]
  - Blood glucose decreased [Recovering/Resolving]
  - Blood gastrin increased [Recovering/Resolving]
  - Abdominal pain [Recovering/Resolving]
  - Injection site pain [Recovering/Resolving]
